FAERS Safety Report 8973396 (Version 1)
Quarter: 2012Q4

REPORT INFORMATION
  Report Type: 
  Country: BE (occurrence: BE)
  Receive Date: 20121218
  Receipt Date: 20121218
  Transmission Date: 20130627
  Serious: Yes (Death, Life-Threatening, Hospitalization)
  Sender: FDA-Public Use
  Company Number: BE-B.I. PHARMACEUTICALS,INC./RIDGEFIELD-2012-BL-00628BL

PATIENT
  Age: 89 Year
  Sex: Male

DRUGS (10)
  1. PRADAXA [Suspect]
     Indication: ATRIAL FIBRILLATION
     Dosage: 220 mg
     Route: 048
     Dates: start: 20121116, end: 20121122
  2. L-THYROXINE [Concomitant]
     Dosage: 125 NR
     Route: 048
  3. ACETYLCYSTEINE [Concomitant]
     Dosage: 600 NR
     Route: 048
  4. XANAX [Concomitant]
     Dosage: 1 NR
     Route: 048
  5. BURINEX [Concomitant]
     Dosage: 1 mg
     Route: 048
  6. ZOCOR [Concomitant]
     Dosage: 20 NR
     Route: 048
  7. OMEPRAZOLE [Concomitant]
     Dosage: 40 NR
     Route: 048
  8. APOCARD [Concomitant]
     Dosage: 100 NR
     Route: 048
  9. LASIX [Concomitant]
     Dosage: 40 NR
     Route: 048
  10. CARDIOASPIRINE [Concomitant]

REACTIONS (5)
  - Sepsis [Fatal]
  - Intestinal obstruction [Fatal]
  - Prothrombin level decreased [Unknown]
  - International normalised ratio increased [Unknown]
  - Lung disorder [Unknown]
